FAERS Safety Report 14180817 (Version 2)
Quarter: 2017Q4

REPORT INFORMATION
  Report Type: Report from Study
  Country: DE (occurrence: DE)
  Receive Date: 20171110
  Receipt Date: 20171116
  Transmission Date: 20180321
  Serious: Yes (Death)
  Sender: FDA-Public Use
  Company Number: DE-ACTELION-A-US2017-162370

PATIENT
  Age: 79 Year
  Sex: Male

DRUGS (10)
  1. NOVALGIN [Concomitant]
     Active Substance: METAMIZOLE SODIUM
  2. VENTAVIS [Suspect]
     Active Substance: ILOPROST
     Indication: PULMONARY ARTERIAL HYPERTENSION
     Dosage: 5 MCG, Q4HR
     Route: 055
     Dates: start: 20170116, end: 20171031
  3. SILDENAFIL. [Concomitant]
     Active Substance: SILDENAFIL
     Indication: PULMONARY ARTERIAL HYPERTENSION
  4. SPASMEX [Concomitant]
     Active Substance: TROSPIUM CHLORIDE
  5. TILIDIN [Concomitant]
     Active Substance: NALOXONE HYDROCHLORIDE\TILIDINE HYDROCHLORIDE
  6. OPSUMIT [Concomitant]
     Active Substance: MACITENTAN
  7. TOREM [Concomitant]
     Active Substance: TORSEMIDE
  8. ALDACTONE A [Concomitant]
     Active Substance: SPIRONOLACTONE
  9. ASPIRIN. [Concomitant]
     Active Substance: ASPIRIN
  10. MOVICOL [Concomitant]
     Active Substance: POLYETHYLENE GLYCOL 3350\POTASSIUM CHLORIDE\SODIUM BICARBONATE\SODIUM CHLORIDE

REACTIONS (1)
  - Death [Fatal]

NARRATIVE: CASE EVENT DATE: 20171031
